FAERS Safety Report 19102136 (Version 2)
Quarter: 2022Q3

REPORT INFORMATION
  Report Type: Spontaneous
  Country: FR (occurrence: FR)
  Receive Date: 20210407
  Receipt Date: 20220826
  Transmission Date: 20221027
  Serious: Yes (Other)
  Sender: FDA-Public Use
  Company Number: FR-SA-2021SA112205

PATIENT
  Age: 3 Year
  Sex: Female

DRUGS (20)
  1. PREDNISOLONE [Suspect]
     Active Substance: PREDNISOLONE
     Indication: Still^s disease
     Dosage: 1 MG/KG, QD WAS GRADUALLY TAPERED AND ULTIMATELY STOPPED
  2. ALEMTUZUMAB [Suspect]
     Active Substance: ALEMTUZUMAB
     Indication: Bone marrow conditioning regimen
     Dosage: 0.5 MG/KG
  3. ALEMTUZUMAB [Suspect]
     Active Substance: ALEMTUZUMAB
     Indication: Still^s disease
  4. FLUDARABINE PHOSPHATE [Suspect]
     Active Substance: FLUDARABINE PHOSPHATE
     Indication: Bone marrow conditioning regimen
     Dosage: 160 MG/M2
  5. FLUDARABINE PHOSPHATE [Suspect]
     Active Substance: FLUDARABINE PHOSPHATE
     Indication: Still^s disease
  6. CYCLOPHOSPHAMIDE [Suspect]
     Active Substance: CYCLOPHOSPHAMIDE
     Indication: Prophylaxis against graft versus host disease
     Dosage: 50 MG/KG AT DAY 3 AND 4
  7. METHOTREXATE [Suspect]
     Active Substance: METHOTREXATE
     Indication: Still^s disease
     Dosage: 5 MG, QW
  8. RITUXIMAB [Suspect]
     Active Substance: RITUXIMAB
     Indication: Bone marrow conditioning regimen
     Dosage: 375 MG/M2
  9. BUSULFAN [Suspect]
     Active Substance: BUSULFAN
     Indication: Bone marrow conditioning regimen
     Dosage: AUC OF 25638 MICROM/MIN
  10. BUSULFAN [Suspect]
     Active Substance: BUSULFAN
     Indication: Still^s disease
     Dosage: AUC OF 25,638 MICROM/MIN
  11. CYCLOSPORINE [Suspect]
     Active Substance: CYCLOSPORINE
     Indication: Prophylaxis against graft versus host disease
     Dosage: STARTING ON DAY 5
  12. MYCOPHENOLATE MOFETIL [Suspect]
     Active Substance: MYCOPHENOLATE MOFETIL
     Indication: Prophylaxis against graft versus host disease
     Dosage: STARTING ON DAY 5
  13. THALIDOMIDE [Concomitant]
     Active Substance: THALIDOMIDE
     Indication: Still^s disease
     Dosage: 50 MG, QD
  14. HYDROCORTISONE [Concomitant]
     Active Substance: HYDROCORTISONE
     Indication: Secondary adrenocortical insufficiency
     Dosage: 12.5 MG/M2, QD
  15. INDOMETHACIN [Concomitant]
     Active Substance: INDOMETHACIN
     Indication: Still^s disease
     Dosage: 25 MG, QD
  16. LEVOTHYROXINE [Concomitant]
     Active Substance: LEVOTHYROXINE
     Indication: Autoimmune thyroiditis
     Dosage: UNK
  17. INFLIXIMAB [Concomitant]
     Active Substance: INFLIXIMAB
     Indication: Still^s disease
     Dosage: 75 MG, Q4W
  18. HUMAN IMMUNOGLOBULIN G [Concomitant]
     Active Substance: HUMAN IMMUNOGLOBULIN G
     Indication: Immune thrombocytopenia
     Dosage: UNK UNK, Q3W
     Route: 042
  19. HUMAN IMMUNOGLOBULIN G [Concomitant]
     Active Substance: HUMAN IMMUNOGLOBULIN G
     Dosage: 1 G/KG
     Route: 042
  20. HUMAN IMMUNOGLOBULIN G [Concomitant]
     Active Substance: HUMAN IMMUNOGLOBULIN G
     Dosage: 4 G, QW
     Route: 058

REACTIONS (10)
  - Actinomycotic sepsis [Recovering/Resolving]
  - Clostridium difficile colitis [Recovered/Resolved]
  - Obliterative bronchiolitis [Recovered/Resolved]
  - Cellulitis staphylococcal [Recovering/Resolving]
  - Superinfection bacterial [Recovering/Resolving]
  - Varicella zoster virus infection [Recovering/Resolving]
  - Infection reactivation [Recovering/Resolving]
  - Herpes zoster [Recovering/Resolving]
  - Off label use [Unknown]
  - Off label use [Unknown]
